FAERS Safety Report 12444074 (Version 1)
Quarter: 2016Q2

REPORT INFORMATION
  Report Type: Spontaneous
  Country: US (occurrence: US)
  Receive Date: 20160607
  Receipt Date: 20160607
  Transmission Date: 20160815
  Serious: No
  Sender: FDA-Public Use
  Company Number: US-SA-2016SA084154

PATIENT
  Age: 66 Year
  Sex: Female

DRUGS (3)
  1. TOUJEO [Suspect]
     Active Substance: INSULIN GLARGINE
     Indication: TYPE 2 DIABETES MELLITUS
     Dosage: DOSE: 60 UNITS EVERY MORNING AND 55 UNITS AT NIGHT
     Route: 065
     Dates: start: 201604
  2. SOLOSTAR [Concomitant]
     Active Substance: DEVICE
     Dates: start: 201604
  3. LANTUS [Concomitant]
     Active Substance: INSULIN GLARGINE
     Dosage: 90 UNITS EVERY MORNING AND 40 UNITS EVERY NIGHT

REACTIONS (1)
  - Product use issue [Unknown]

NARRATIVE: CASE EVENT DATE: 201604
